FAERS Safety Report 10221906 (Version 1)
Quarter: 2014Q2

REPORT INFORMATION
  Report Type: Spontaneous
  Country: US (occurrence: None)
  Receive Date: 20140606
  Receipt Date: 20140606
  Transmission Date: 20141212
  Serious: Yes (Other)
  Sender: FDA-Public Use
  Company Number: None

PATIENT
  Age: 76 Year
  Sex: Female
  Weight: 91.63 kg

DRUGS (9)
  1. PREVACID 30 MG BRAND NAME AND GENERIC TAKEN [Suspect]
     Indication: GASTROOESOPHAGEAL REFLUX DISEASE
     Dosage: 1 CAP ONCE DAILY TAKEN BY MOUTH
     Route: 048
  2. SLEEP APNEA MACHINE [Concomitant]
  3. AMLODIPINE [Concomitant]
  4. ATORVASTATIN [Concomitant]
  5. CALCIUM CARBONATE [Concomitant]
  6. VIT D [Concomitant]
  7. GLIPIZIDE [Concomitant]
  8. SPIRONOLACTONE [Concomitant]
  9. VITAMIN C [Concomitant]

REACTIONS (2)
  - Gastric polyps [None]
  - Duodenal polyp [None]
